FAERS Safety Report 11166294 (Version 1)
Quarter: 2015Q2

REPORT INFORMATION
  Report Type: Report from Study
  Country: US (occurrence: US)
  Receive Date: 20150605
  Receipt Date: 20150605
  Transmission Date: 20150821
  Serious: Yes (Hospitalization, Other)
  Sender: FDA-Public Use
  Company Number: US-ROCHE-1582730

PATIENT
  Age: 77 Year
  Sex: Female
  Weight: 58.11 kg

DRUGS (12)
  1. RITUXAN [Suspect]
     Active Substance: RITUXIMAB
     Indication: LYMPHOCYTIC LYMPHOMA
     Dosage: 6 INFUSIONS DONE WEEKLY
     Route: 065
     Dates: start: 2006
  2. LEUKERAN [Suspect]
     Active Substance: CHLORAMBUCIL
     Indication: CHRONIC LYMPHOCYTIC LEUKAEMIA
     Dosage: 22MG--11 PILLS--A DAY
     Route: 048
     Dates: start: 20150428, end: 20150502
  3. LISINOPRIL. [Concomitant]
     Active Substance: LISINOPRIL
     Indication: HYPERTENSION
     Route: 048
  4. ALLOPURINOL. [Concomitant]
     Active Substance: ALLOPURINOL
     Indication: URINE URIC ACID
     Route: 048
     Dates: start: 20150421
  5. GAZYVA [Suspect]
     Active Substance: OBINUTUZUMAB
     Indication: NON-HODGKIN^S LYMPHOMA
  6. VITAMIN B12 [Concomitant]
     Active Substance: CYANOCOBALAMIN
  7. RANITIDINE [Concomitant]
     Active Substance: RANITIDINE\RANITIDINE HYDROCHLORIDE
     Indication: ULCER
     Route: 048
  8. TOPROL XL [Concomitant]
     Active Substance: METOPROLOL SUCCINATE
     Indication: HYPERTENSION
     Dosage: HELD ON OBINITUZUMAB DAYS
     Route: 048
  9. GAZYVA [Suspect]
     Active Substance: OBINUTUZUMAB
     Indication: LYMPHOCYTIC LYMPHOMA
     Route: 042
     Dates: start: 20150429
  10. RANITIDINE [Concomitant]
     Active Substance: RANITIDINE\RANITIDINE HYDROCHLORIDE
     Indication: GASTROOESOPHAGEAL REFLUX DISEASE
  11. GAZYVA [Suspect]
     Active Substance: OBINUTUZUMAB
     Indication: CHRONIC LYMPHOCYTIC LEUKAEMIA
     Route: 042
     Dates: start: 20150428
  12. ALLOPURINOL. [Concomitant]
     Active Substance: ALLOPURINOL
     Indication: HYPERURICAEMIA

REACTIONS (13)
  - Malaise [Recovering/Resolving]
  - Dysphagia [Unknown]
  - Insomnia [Unknown]
  - Pleural effusion [Recovered/Resolved]
  - Dyspnoea [Recovered/Resolved]
  - Neutropenia [Recovered/Resolved]
  - Hypersomnia [Not Recovered/Not Resolved]
  - Fatigue [Not Recovered/Not Resolved]
  - Nausea [Unknown]
  - Aphasia [Unknown]
  - Memory impairment [Unknown]
  - Asthenia [Unknown]
  - Hallucination [Recovered/Resolved]

NARRATIVE: CASE EVENT DATE: 20150504
